FAERS Safety Report 6473224-X (Version None)
Quarter: 2009Q4

REPORT INFORMATION
  Report Type: 
  Country: None (occurrence: None)
  Receive Date: 20091204
  Receipt Date: 20080821
  Transmission Date: 20100525
  Serious: Yes (Hospitalization, Other)
  Sender: FDA-Public Use
  Company Number: US-ELI_LILLY_AND_COMPANY-US200808004389

PATIENT
  Sex: Female

DRUGS (23)
  1. BYETTA [Suspect]
     Dosage: 10 UG, 2/D
     Route: 058
     Dates: end: 20080201
  2. TOPROL-XL                          /00376903/ [Concomitant]
     Dosage: 100 UNK, EACH MORNING
     Route: 065
  3. VYTORIN [Concomitant]
     Dosage: UNK, EACH EVENING
     Route: 065
  4. TRICOR [Concomitant]
     Dosage: 145 MG, EACH EVENING
     Route: 065
  5. COZAAR [Concomitant]
     Dosage: 100 MG, EACH MORNING
     Route: 065
  6. GLUCOTROL [Concomitant]
     Dosage: 10 MG, EACH MORNING
     Route: 065
  7. AVANDIA [Concomitant]
     Dosage: 8 MG, EACH MORNING
     Route: 065
  8. LASIX [Concomitant]
     Dosage: 40 MG, DAILY (1/D)
     Route: 065
  9. LASIX [Concomitant]
     Dosage: 80 MG, DAILY (1/D)
     Route: 065
  10. PROZAC [Concomitant]
     Dosage: 40 MG, EACH MORNING
     Route: 065
  11. PRILOSEC [Concomitant]
     Dosage: 20 MG, DAILY (1/D)
     Route: 065
  12. METFORMIN HCL [Concomitant]
     Dosage: 1000 MG, 2/D
     Route: 065
  13. NEURONTIN [Concomitant]
     Dosage: 600 MG, EACH EVENING
     Route: 065
  14. THIAZIDE DERIVATIVES [Concomitant]
     Dosage: UNK, UNKNOWN
     Route: 065
     Dates: end: 20080201
  15. ASPIRIN [Concomitant]
     Dosage: 325 MG, EACH MORNING
     Route: 065
  16. FLEXERIL [Concomitant]
     Indication: MUSCLE SPASMS
     Dosage: 10 MG, AS NEEDED
     Route: 065
  17. NITROGLYCERIN [Concomitant]
     Dosage: UNK, DAILY (1/D)
     Route: 048
  18. TYLENOL W/ CODEINE [Concomitant]
     Indication: BACK PAIN
     Dosage: UNK, AS NEEDED
     Route: 065
  19. PLAVIX [Concomitant]
     Dosage: 75 MG, DAILY (1/D)
     Route: 065
  20. ALDACTONE [Concomitant]
     Dosage: 25 MG, 2/D
     Route: 065
  21. CALCIUM CARBONATE [Concomitant]
     Dosage: 500 MG, 2/D
     Route: 065
  22. IMDUR [Concomitant]
     Dosage: 30 MG, DAILY (1/D)
     Route: 065
  23. ATIVAN [Concomitant]
     Dosage: 1 MG, AS NEEDED
     Route: 065

REACTIONS (3)
  - BLOOD GLUCOSE INCREASED [None]
  - HYPOKALAEMIA [None]
  - PANCREATITIS RELAPSING [None]
